FAERS Safety Report 5610804-5 (Version None)
Quarter: 2008Q1

REPORT INFORMATION
  Report Type: 
  Country: None (occurrence: None)
  Receive Date: 20080201
  Receipt Date: 20080125
  Transmission Date: 20080703
  Serious: Yes (Other)
  Sender: FDA-Public Use
  Company Number: PHHO2008CN01507

PATIENT
  Age: 39 Year
  Sex: Male
  Weight: 82 kg

DRUGS (1)
  1. AMN107 [Suspect]
     Indication: CHRONIC MYELOID LEUKAEMIA
     Dosage: 400 MG, BID
     Route: 048
     Dates: start: 20070608, end: 20080124

REACTIONS (1)
  - ELECTROCARDIOGRAM QT PROLONGED [None]
